FAERS Safety Report 20040506 (Version 1)
Quarter: 2021Q4

REPORT INFORMATION
  Report Type: Spontaneous
  Country: US (occurrence: None)
  Receive Date: 20211107
  Receipt Date: 20211107
  Transmission Date: 20220303
  Serious: Yes (Hospitalization)
  Sender: FDA-Public Use
  Company Number: None

PATIENT
  Age: 76 Year
  Sex: Male
  Weight: 120 kg

DRUGS (1)
  1. ATORVASTATIN [Suspect]
     Active Substance: ATORVASTATIN
     Indication: Hyperlipidaemia
     Dosage: FREQUENCY : DAILY;?
     Route: 048
     Dates: start: 20201021, end: 20211030

REACTIONS (6)
  - Rhabdomyolysis [None]
  - Hepatic enzyme increased [None]
  - Fall [None]
  - Dysstasia [None]
  - Gait disturbance [None]
  - Myopathy [None]

NARRATIVE: CASE EVENT DATE: 20211031
